FAERS Safety Report 4583438-1 (Version None)
Quarter: 2005Q1

REPORT INFORMATION
  Report Type: 
  Country: None (occurrence: None)
  Receive Date: 20050211
  Receipt Date: 20050131
  Transmission Date: 20050727
  Serious: Yes (Other)
  Sender: FDA-Public Use
  Company Number: 2004097383

PATIENT
  Age: 69 Year
  Sex: Female
  Weight: 55.7924 kg

DRUGS (6)
  1. CELEBREX [Suspect]
     Indication: OSTEOARTHRITIS
     Dosage: 400 MG (200 MG, 2 IN 1 D), ORAL
     Route: 048
  2. VASERETIC [Concomitant]
  3. AMLODIPINE BESYLATE [Concomitant]
  4. ATORVASTATIN (ATORVASTATIN) [Concomitant]
  5. ALPRAZOLAM [Concomitant]
  6. ESOMEPRAZOLE (ESOMEPRAZOLE) [Concomitant]

REACTIONS (7)
  - BRONCHIECTASIS [None]
  - COMPRESSION FRACTURE [None]
  - DRUG EFFECT DECREASED [None]
  - GASTROINTESTINAL DISORDER [None]
  - GASTROOESOPHAGEAL REFLUX DISEASE [None]
  - PAIN [None]
  - SPINAL FRACTURE [None]
